FAERS Safety Report 16990447 (Version 2)
Quarter: 2019Q4

REPORT INFORMATION
  Report Type: Spontaneous
  Country: DE (occurrence: DE)
  Receive Date: 20191104
  Receipt Date: 20191115
  Transmission Date: 20200122
  Serious: Yes (Other)
  Sender: FDA-Public Use
  Company Number: DE-PFIZER INC-2019419205

PATIENT

DRUGS (2)
  1. IBUPROFEN. [Suspect]
     Active Substance: IBUPROFEN
     Dosage: 800 MILLIGRAM AS NEEDED
     Route: 065
  2. APIXABAN [Suspect]
     Active Substance: APIXABAN
     Dosage: UNK

REACTIONS (2)
  - Post procedural haemorrhage [Recovering/Resolving]
  - Congestive cardiomyopathy [Unknown]
